FAERS Safety Report 12985607 (Version 3)
Quarter: 2017Q2

REPORT INFORMATION
  Report Type: Spontaneous
  Country: US (occurrence: US)
  Receive Date: 20161130
  Receipt Date: 20170630
  Transmission Date: 20170830
  Serious: No
  Sender: FDA-Public Use
  Company Number: US-BIOGEN-2016BI00321736

PATIENT
  Sex: Female

DRUGS (2)
  1. TECFIDERA [Suspect]
     Active Substance: DIMETHYL FUMARATE
     Route: 065
     Dates: start: 201412
  2. TECFIDERA [Suspect]
     Active Substance: DIMETHYL FUMARATE
     Indication: MULTIPLE SCLEROSIS
     Route: 065
     Dates: start: 20141204

REACTIONS (6)
  - Multiple sclerosis [Unknown]
  - Mobility decreased [Unknown]
  - Drug ineffective [Unknown]
  - Depression [Not Recovered/Not Resolved]
  - Emotional distress [Unknown]
  - Impaired self-care [Not Recovered/Not Resolved]
